FAERS Safety Report 7972206-6 (Version None)
Quarter: 2011Q4

REPORT INFORMATION
  Report Type: 
  Country: None (occurrence: None)
  Receive Date: 20111212
  Receipt Date: 20111130
  Transmission Date: 20120403
  Serious: Yes (Hospitalization, Other)
  Sender: FDA-Public Use
  Company Number: ES-ELI_LILLY_AND_COMPANY-ES201112001006

PATIENT
  Sex: Female
  Weight: 72 kg

DRUGS (6)
  1. LEXATIN [Concomitant]
     Dosage: 1 DF, QD
     Route: 048
  2. MIDAZOLAM HCL [Concomitant]
     Indication: SLEEP DISORDER
     Dosage: 1 DF, QD
     Route: 048
  3. ACETAMINOPHEN [Concomitant]
     Indication: ANALGESIC THERAPY
     Dosage: 2 DF, QD
     Route: 048
  4. FORTEO [Suspect]
     Indication: OSTEOPOROSIS
     Dosage: 20 UG, QD
     Route: 058
     Dates: start: 20110513
  5. PROZAC [Concomitant]
     Indication: DEPRESSION
     Dosage: 2 DF, QD
     Route: 048
  6. LEXATIN [Concomitant]
     Indication: DEPRESSION
     Dosage: 2 DF, QD
     Route: 048

REACTIONS (2)
  - HAEMOPTYSIS [None]
  - WOUND INFECTION [None]
